FAERS Safety Report 5096395-9 (Version None)
Quarter: 2006Q3

REPORT INFORMATION
  Report Type: 
  Country: None (occurrence: None)
  Receive Date: 20060830
  Receipt Date: 20060817
  Transmission Date: 20061208
  Serious: Yes (Hospitalization)
  Sender: FDA-Public Use
  Company Number: CA200608004189

PATIENT
  Age: 73 Year
  Sex: Female

DRUGS (5)
  1. FORTEO [Suspect]
     Indication: OSTEOPOROSIS
     Dosage: 20 UG, DAILY (1/D)
     Dates: start: 20051212
  2. FORTEO PEN (FORTEO PEN) PEN, DISPOSABLE [Concomitant]
  3. FOSAMAX [Concomitant]
  4. APO-TRIAZIDE (HYDROCHLOROTHIAZIDE, TRIAMTERENE) [Concomitant]
  5. DIOVAN [Concomitant]

REACTIONS (2)
  - CHOLECYSTECTOMY [None]
  - PANCREATITIS [None]
